FAERS Safety Report 4496495-8 (Version None)
Quarter: 2004Q3

REPORT INFORMATION
  Report Type: 
  Country: None (occurrence: None)
  Receive Date: 20040923
  Receipt Date: 20031115
  Transmission Date: 20050211
  Serious: Yes (Other)
  Sender: FDA-Public Use
  Company Number: 2003038938

PATIENT
  Age: 19 Year
  Sex: Male

DRUGS (1)
  1. ZYRTEC [Suspect]
     Indication: ILL-DEFINED DISORDER
     Dosage: 20 MG (ONCE)

REACTIONS (7)
  - CHEST PAIN [None]
  - HEART RATE INCREASED [None]
  - HYPERSOMNIA [None]
  - INTENTIONAL OVERDOSE [None]
  - LOSS OF CONSCIOUSNESS [None]
  - PALPITATIONS [None]
  - PSORIASIS [None]
